FAERS Safety Report 17451836 (Version 1)
Quarter: 2020Q1

REPORT INFORMATION
  Report Type: Spontaneous
  Country: US (occurrence: US)
  Receive Date: 20200224
  Receipt Date: 20200224
  Transmission Date: 20200409
  Serious: Yes (Other)
  Sender: FDA-Public Use
  Company Number: None

PATIENT
  Age: 61 Year
  Sex: Female
  Weight: 94.5 kg

DRUGS (1)
  1. TRINTELLIX [Suspect]
     Active Substance: VORTIOXETINE HYDROBROMIDE
     Route: 048
     Dates: start: 20190721, end: 20200205

REACTIONS (3)
  - Skin hypertrophy [None]
  - Gastrooesophageal reflux disease [None]
  - Rhinorrhoea [None]

NARRATIVE: CASE EVENT DATE: 20190921
